FAERS Safety Report 10598461 (Version 2)
Quarter: 2014Q4

REPORT INFORMATION
  Report Type: Spontaneous
  Country: US (occurrence: US)
  Receive Date: 20141121
  Receipt Date: 20141121
  Transmission Date: 20150529
  Serious: No
  Sender: FDA-Public Use
  Company Number: US-TEVA-451936USA

PATIENT
  Sex: Female

DRUGS (1)
  1. DOXEPIN [Suspect]
     Active Substance: DOXEPIN
     Route: 048

REACTIONS (4)
  - Vomiting [Unknown]
  - Product quality issue [Unknown]
  - Nausea [Unknown]
  - Gastrooesophageal reflux disease [Recovered/Resolved]
